FAERS Safety Report 24845981 (Version 1)
Quarter: 2025Q1

REPORT INFORMATION
  Report Type: Spontaneous
  Country: IN (occurrence: IN)
  Receive Date: 20250115
  Receipt Date: 20250115
  Transmission Date: 20250408
  Serious: Yes (Death)
  Sender: ROCHE
  Company Number: IN-ROCHE-10000148134

PATIENT
  Age: 31 Year
  Sex: Male

DRUGS (1)
  1. TECENTRIQ [Suspect]
     Active Substance: ATEZOLIZUMAB
     Indication: Lymphoma
     Route: 042
     Dates: start: 20241119

REACTIONS (3)
  - Off label use [Unknown]
  - Lymphoma [Fatal]
  - Neoplasm [Fatal]
